FAERS Safety Report 5495003-2 (Version None)
Quarter: 2007Q4

REPORT INFORMATION
  Report Type: 
  Country: None (occurrence: None)
  Receive Date: 20071015
  Receipt Date: 20070329
  Transmission Date: 20080405
  Serious: Yes (Hospitalization)
  Sender: FDA-Public Use
  Company Number: S07-USA-01394-01

PATIENT
  Age: 57 Year
  Sex: Male
  Weight: 79.8331 kg

DRUGS (4)
  1. LEXAPRO [Suspect]
     Indication: DEPRESSION
     Dosage: 10 MG QD PO
     Route: 048
     Dates: start: 20070205, end: 20070316
  2. WELLBUTRIN XL [Suspect]
     Indication: DEPRESSION
     Dosage: 300 MG QD
     Dates: start: 20070212, end: 20070316
  3. ALCOHOL [Suspect]
     Dates: start: 20070317
  4. LOTREL [Concomitant]

REACTIONS (8)
  - AGGRESSION [None]
  - CARDIAC MURMUR [None]
  - DECREASED APPETITE [None]
  - DEHYDRATION [None]
  - DEPRESSION [None]
  - MANIA [None]
  - SUICIDAL IDEATION [None]
  - TREMOR [None]
